FAERS Safety Report 6219153-8 (Version None)
Quarter: 2009Q2

REPORT INFORMATION
  Report Type: 
  Country: None (occurrence: None)
  Receive Date: 20090605
  Receipt Date: 20090605
  Transmission Date: 20091009
  Serious: Yes (Hospitalization)
  Sender: FDA-Public Use
  Company Number: None

PATIENT
  Age: 70 Year
  Sex: Male
  Weight: 51.7101 kg

DRUGS (13)
  1. BEVACIZUMAB [Suspect]
     Indication: NON-SMALL CELL LUNG CANCER
     Dosage: 15MG/KG IV
     Route: 042
     Dates: end: 20090512
  2. ERLOTINIB [Suspect]
     Indication: NON-SMALL CELL LUNG CANCER
     Dosage: 100MG PO
     Route: 048
     Dates: end: 20090602
  3. CO-EMZYME Q-10 [Concomitant]
  4. VITAMIN + IRON [Concomitant]
  5. IMODIUM A-D [Concomitant]
  6. MINOCYCLINE HCL [Concomitant]
  7. NUTRITIONAL SUPPLEMENT ESSIAC TEA [Concomitant]
  8. LOVAZA [Concomitant]
  9. PREDNISONE [Concomitant]
  10. PREPARATION H [Concomitant]
  11. TYLENOL (CAPLET) [Concomitant]
  12. VITAMIN E-SELENIUM [Concomitant]
  13. XANAX [Concomitant]

REACTIONS (1)
  - PNEUMOTHORAX [None]
